FAERS Safety Report 24199922 (Version 1)
Quarter: 2024Q3

REPORT INFORMATION
  Report Type: Report from Study
  Country: US (occurrence: US)
  Receive Date: 20240812
  Receipt Date: 20240812
  Transmission Date: 20241017
  Serious: Yes (Other)
  Sender: UCB
  Company Number: US-UCBSA-2024021948

PATIENT
  Sex: Female

DRUGS (1)
  1. BRIVARACETAM [Suspect]
     Active Substance: BRIVARACETAM
     Indication: Seizure
     Dosage: 50 MILLIGRAM, 2X/DAY (BID)
     Route: 048

REACTIONS (6)
  - Seizure [Unknown]
  - Confusional state [Unknown]
  - Disturbance in attention [Unknown]
  - Stress [Unknown]
  - Product availability issue [Unknown]
  - Therapy interrupted [Unknown]
